FAERS Safety Report 13791146 (Version 1)
Quarter: 2017Q3

REPORT INFORMATION
  Report Type: Spontaneous
  Country: US (occurrence: US)
  Receive Date: 20170725
  Receipt Date: 20170725
  Transmission Date: 20171127
  Serious: Yes (Other)
  Sender: FDA-Public Use
  Company Number: US-MYLANLABS-2017M1042927

PATIENT

DRUGS (3)
  1. CALCIUM [Concomitant]
     Active Substance: CALCIUM
     Indication: PRODUCT USED FOR UNKNOWN INDICATION
     Dosage: UNK
  2. PREDNISONE. [Suspect]
     Active Substance: PREDNISONE
     Indication: URTICARIA
     Dosage: UNK
  3. PREDNISONE TABLETS USP [Suspect]
     Active Substance: PREDNISONE
     Indication: URTICARIA
     Dosage: 40 MG, (ONE TWICE DAILY) BID
     Route: 048
     Dates: start: 20170617

REACTIONS (6)
  - Swelling face [Recovered/Resolved]
  - Cough [Recovered/Resolved]
  - Peripheral swelling [Recovered/Resolved]
  - Arthralgia [Recovered/Resolved]
  - Throat irritation [Recovered/Resolved]
  - Pain in extremity [Recovered/Resolved]

NARRATIVE: CASE EVENT DATE: 20170618
